FAERS Safety Report 9706599 (Version 3)
Quarter: 2013Q4

REPORT INFORMATION
  Report Type: Spontaneous
  Country: IT (occurrence: IT)
  Receive Date: 20131125
  Receipt Date: 20131209
  Transmission Date: 20140711
  Serious: Yes (Other)
  Sender: FDA-Public Use
  Company Number: IT-ACCORD-018379

PATIENT
  Age: 55 Year
  Sex: Female
  Weight: 39 kg

DRUGS (5)
  1. DECADRON [Concomitant]
  2. TRIMETON [Concomitant]
     Indication: PREMEDICATION
  3. ZANTAC [Concomitant]
  4. IRINOTECAN HYDROCHLORIDE [Suspect]
     Indication: ADENOCARCINOMA OF COLON
     Route: 042
     Dates: start: 20130228, end: 20130627
  5. ERBITUX [Concomitant]
     Indication: ADENOCARCINOMA OF COLON
     Dates: start: 20130219

REACTIONS (4)
  - Anaemia [Recovered/Resolved]
  - Leukopenia [Recovering/Resolving]
  - Neutropenia [Recovered/Resolved]
  - Myalgia [Recovered/Resolved]
